FAERS Safety Report 15016209 (Version 3)
Quarter: 2019Q2

REPORT INFORMATION
  Report Type: Spontaneous
  Country: US (occurrence: US)
  Receive Date: 20180615
  Receipt Date: 20190530
  Transmission Date: 20190711
  Serious: No
  Sender: FDA-Public Use
  Company Number: US-PFIZER INC-2018243351

PATIENT
  Age: 72 Year
  Sex: Female
  Weight: 80.73 kg

DRUGS (1)
  1. ADVIL [Suspect]
     Active Substance: IBUPROFEN
     Dosage: UNK
     Dates: start: 2015, end: 201806

REACTIONS (2)
  - Ulcer [Recovering/Resolving]
  - Abdominal discomfort [Recovering/Resolving]
